FAERS Safety Report 5049612-5 (Version None)
Quarter: 2006Q2

REPORT INFORMATION
  Report Type: 
  Country: None (occurrence: None)
  Receive Date: 20060601
  Receipt Date: 20060224
  Transmission Date: 20061013
  Serious: No
  Sender: FDA-Public Use
  Company Number: US200603000061

PATIENT
  Age: 36 Year
  Sex: Female

DRUGS (5)
  1. CYMBALTA [Suspect]
     Dosage: SEE IMAGE
     Dates: start: 20051001, end: 20051101
  2. CYMBALTA [Suspect]
     Dosage: SEE IMAGE
     Dates: start: 20041201
  3. CYMBALTA [Suspect]
     Dosage: SEE IMAGE
     Dates: start: 20050501
  4. CYMBALTA [Suspect]
     Dosage: SEE IMAGE
     Dates: start: 20060101
  5. AMBIEN [Concomitant]

REACTIONS (6)
  - AKATHISIA [None]
  - DEPRESSED MOOD [None]
  - DIZZINESS [None]
  - DRUG WITHDRAWAL SYNDROME [None]
  - HYPOAESTHESIA [None]
  - IRRITABILITY [None]
